FAERS Safety Report 6387992-9 (Version None)
Quarter: 2009Q4

REPORT INFORMATION
  Report Type: 
  Country: None (occurrence: None)
  Receive Date: 20091001
  Receipt Date: 20091001
  Transmission Date: 20100525
  Serious: Yes (Other)
  Sender: FDA-Public Use
  Company Number: None

PATIENT
  Age: 58 Year
  Sex: Female

DRUGS (1)
  1. HYDROCODONE BITARTRATE + ACETAMINOPHEN [Suspect]
     Indication: ANALGESIC THERAPY
     Dosage: ONE TABLET TWICE DAILY PO
     Route: 048
     Dates: start: 20090715

REACTIONS (3)
  - DISCOMFORT [None]
  - PAIN [None]
  - PRODUCT SUBSTITUTION ISSUE [None]
